FAERS Safety Report 6031004-3 (Version None)
Quarter: 2009Q1

REPORT INFORMATION
  Report Type: 
  Country: None (occurrence: None)
  Receive Date: 20090106
  Receipt Date: 20090106
  Transmission Date: 20090719
  Serious: Yes (Life-Threatening, Other)
  Sender: FDA-Public Use
  Company Number: None

PATIENT
  Sex: Female
  Weight: 63.5036 kg

DRUGS (5)
  1. CYMBALTA [Suspect]
     Indication: DEPRESSION
     Dosage: 30MG ONCE DAILY, 1 WEEK PO
     Route: 048
     Dates: start: 20081113, end: 20081119
  2. CYMBALTA [Suspect]
     Dosage: 60MG ONCE DAILY, 5 WEEK PO
     Route: 048
     Dates: start: 20081120, end: 20081224
  3. FLUOXETINE [Concomitant]
  4. PROZAC [Concomitant]
  5. XANAX [Concomitant]

REACTIONS (21)
  - ANGER [None]
  - BALANCE DISORDER [None]
  - BIPOLAR DISORDER [None]
  - DIARRHOEA [None]
  - DIZZINESS [None]
  - DRUG WITHDRAWAL SYNDROME [None]
  - DYSGEUSIA [None]
  - DYSURIA [None]
  - HALLUCINATION [None]
  - HEADACHE [None]
  - HOSTILITY [None]
  - HYPERACUSIS [None]
  - MALAISE [None]
  - MEMORY IMPAIRMENT [None]
  - MOOD SWINGS [None]
  - NAUSEA [None]
  - NIGHTMARE [None]
  - PALPITATIONS [None]
  - SUICIDAL IDEATION [None]
  - VERTIGO [None]
  - VISION BLURRED [None]
